FAERS Safety Report 9258138 (Version 1)
Quarter: 2013Q2

REPORT INFORMATION
  Report Type: Spontaneous
  Country: BR (occurrence: BR)
  Receive Date: 20130426
  Receipt Date: 20130426
  Transmission Date: 20140414
  Serious: Yes (Hospitalization)
  Sender: FDA-Public Use
  Company Number: BR-PFIZER INC-2013129680

PATIENT
  Age: 61 Year
  Sex: Female

DRUGS (2)
  1. CELEBRA [Suspect]
     Indication: PAIN
     Dosage: 2 (UNSPECIFIED) PER DAY
     Route: 048
     Dates: start: 20100423
  2. LYRICA [Suspect]
     Indication: PAIN
     Dosage: 2 (UNSPECIFIED) PER DAY
     Route: 048
     Dates: start: 20100423

REACTIONS (1)
  - Spinal disorder [Unknown]
